FAERS Safety Report 12855869 (Version 1)
Quarter: 2016Q4

REPORT INFORMATION
  Report Type: Spontaneous
  Country: SI (occurrence: None)
  Receive Date: 20161014
  Receipt Date: 20161014
  Transmission Date: 20170207
  Serious: No
  Sender: FDA-Public Use
  Company Number: SI2016K0363LIT

PATIENT
  Sex: Male

DRUGS (2)
  1. ENAP (ENALAPRIL) TABLET [Suspect]
     Active Substance: ENALAPRIL
     Route: 064
  2. METILDOPA [Suspect]
     Active Substance: METHYLDOPA
     Route: 064

REACTIONS (8)
  - Cardiac murmur [None]
  - Exposure during pregnancy [None]
  - Chromosomal deletion [None]
  - Renal disorder [None]
  - Congenital cystic kidney disease [None]
  - Caesarean section [None]
  - Cryptorchism [None]
  - Foetal growth restriction [None]
